FAERS Safety Report 10891725 (Version 1)
Quarter: 2015Q1

REPORT INFORMATION
  Report Type: Spontaneous
  Country: TW (occurrence: TW)
  Receive Date: 20150306
  Receipt Date: 20150306
  Transmission Date: 20150721
  Serious: Yes (Hospitalization, Other)
  Sender: FDA-Public Use
  Company Number: PHHY2015TW024452

PATIENT
  Age: 83 Year
  Sex: Male

DRUGS (1)
  1. ZOLEDRONATE [Suspect]
     Active Substance: ZOLEDRONIC ACID
     Indication: PROSTATE CANCER
     Dosage: UNK
     Route: 042

REACTIONS (16)
  - Inflammation [Unknown]
  - Metastases to bone [Unknown]
  - Osteonecrosis [Unknown]
  - Osteomyelitis [Unknown]
  - Exposed bone in jaw [Unknown]
  - Bone fistula [Unknown]
  - Dental caries [Unknown]
  - Excessive granulation tissue [Unknown]
  - Osteolysis [Unknown]
  - Osteonecrosis of jaw [Unknown]
  - Bone swelling [Recovering/Resolving]
  - Therapeutic response decreased [Unknown]
  - Dysphagia [Unknown]
  - Abscess jaw [Unknown]
  - Primary sequestrum [Unknown]
  - Bone lesion [Unknown]

NARRATIVE: CASE EVENT DATE: 201006
